FAERS Safety Report 4759192-7 (Version None)
Quarter: 2005Q3

REPORT INFORMATION
  Report Type: 
  Country: None (occurrence: None)
  Receive Date: 20050901
  Receipt Date: 20050804
  Transmission Date: 20060218
  Serious: Yes (Other)
  Sender: FDA-Public Use
  Company Number: PHEH2005US08696

PATIENT
  Age: 52 Year
  Sex: Male

DRUGS (5)
  1. DECADRON [Concomitant]
     Indication: MULTIPLE MYELOMA
     Dosage: 40 MG, 4 DAYS ON AND 4 DAYS OFF
     Route: 048
     Dates: start: 20020601, end: 20020901
  2. DECADRON [Concomitant]
     Dosage: 40 MG, 4 DAYS A MONTH
     Route: 048
     Dates: start: 20030701
  3. ZOMETA [Suspect]
     Indication: MULTIPLE MYELOMA
     Dosage: 4 MG IV Q4 WEEKS
     Route: 042
     Dates: start: 20020601, end: 20021001
  4. ZOMETA [Suspect]
     Dosage: UNK, UNK
     Dates: start: 20030101, end: 20050101
  5. CYTOXAN [Concomitant]
     Indication: MULTIPLE MYELOMA
     Dosage: HIGH DOSE
     Dates: start: 20021001, end: 20021001

REACTIONS (6)
  - ASEPTIC NECROSIS BONE [None]
  - DENTAL OPERATION [None]
  - IMPAIRED HEALING [None]
  - TOOTH DISORDER [None]
  - TOOTH EXTRACTION [None]
  - TOOTHACHE [None]
